FAERS Safety Report 16209288 (Version 2)
Quarter: 2019Q3

REPORT INFORMATION
  Report Type: Spontaneous
  Country: US (occurrence: US)
  Receive Date: 20190417
  Receipt Date: 20190920
  Transmission Date: 20191004
  Serious: No
  Sender: FDA-Public Use
  Company Number: US-BAUSCH-BL-2019-010148

PATIENT
  Age: 73 Year
  Sex: Female
  Weight: 102.15 kg

DRUGS (2)
  1. LUZU [Suspect]
     Active Substance: LULICONAZOLE
     Indication: PRURITUS
     Dosage: APPLY TO AFFECTED AREA AS NEEDED
     Route: 065
     Dates: start: 201802
  2. LUZU [Suspect]
     Active Substance: LULICONAZOLE
     Indication: PRODUCT USE IN UNAPPROVED INDICATION

REACTIONS (3)
  - Drug ineffective for unapproved indication [Unknown]
  - Product use in unapproved indication [Unknown]
  - Expired product administered [Unknown]

NARRATIVE: CASE EVENT DATE: 201802
